FAERS Safety Report 8765998 (Version 2)
Quarter: 2013Q4

REPORT INFORMATION
  Report Type: Spontaneous
  Country: AU (occurrence: AU)
  Receive Date: 20120904
  Receipt Date: 20131105
  Transmission Date: 20140711
  Serious: Yes (Hospitalization)
  Sender: FDA-Public Use
  Company Number: AU-009507513-1208AUS012481

PATIENT
  Age: 55 Year
  Sex: Male

DRUGS (1)
  1. VICTRELIS 200 MG [Suspect]
     Route: 048

REACTIONS (1)
  - Adverse event [Unknown]
